FAERS Safety Report 21035467 (Version 5)
Quarter: 2022Q3

REPORT INFORMATION
  Report Type: Spontaneous
  Country: US (occurrence: US)
  Receive Date: 20220701
  Receipt Date: 20220830
  Transmission Date: 20221026
  Serious: Yes (Hospitalization)
  Sender: FDA-Public Use
  Company Number: US-KARYOPHARM-2022KPT000698

PATIENT

DRUGS (2)
  1. XPOVIO [Suspect]
     Active Substance: SELINEXOR
     Indication: Plasma cell myeloma
     Dosage: 40 MG, WEEKLY
     Route: 048
     Dates: start: 20220615, end: 2022
  2. XPOVIO [Suspect]
     Active Substance: SELINEXOR
     Dosage: 80 MG, WEEKLY
     Route: 048
     Dates: start: 202207, end: 202208

REACTIONS (12)
  - White blood cell count increased [Unknown]
  - Gastrointestinal pain [Unknown]
  - Oedema peripheral [Unknown]
  - Cough [Unknown]
  - Excessive cerumen production [Unknown]
  - Lethargy [Unknown]
  - Vision blurred [Unknown]
  - Nausea [Unknown]
  - Vomiting [Recovering/Resolving]
  - Weight decreased [Unknown]
  - Fatigue [Unknown]
  - Drug ineffective [Unknown]

NARRATIVE: CASE EVENT DATE: 20220101
